FAERS Safety Report 4986651-4 (Version None)
Quarter: 2006Q2

REPORT INFORMATION
  Report Type: 
  Country: None (occurrence: None)
  Receive Date: 20060428
  Receipt Date: 20060426
  Transmission Date: 20061013
  Serious: Yes (Hospitalization)
  Sender: FDA-Public Use
  Company Number: JP-BOEHRINGER INGELHEIM PHARMACEUTICALS, INC.-2006-BP-04766NB

PATIENT
  Sex: Male
  Weight: 63.9 kg

DRUGS (12)
  1. BI-SIFROL TABLETS [Suspect]
     Indication: PARKINSON'S DISEASE
     Route: 048
     Dates: start: 20040607
  2. EC-DOPARL (LEVODOPA_BENSERAZIDE HYDROCHLORIDE) [Concomitant]
     Indication: PARKINSON'S DISEASE
     Route: 048
  3. DOPS [Concomitant]
     Indication: PARKINSON'S DISEASE
     Route: 048
  4. METLIGINE [Concomitant]
     Indication: HYPOTENSION
     Route: 048
  5. MUCOBULIN [Concomitant]
     Indication: BRONCHITIS CHRONIC
     Route: 048
     Dates: start: 20040712
  6. EVIPROSTAT [Concomitant]
     Indication: BENIGN PROSTATIC HYPERPLASIA
     Route: 048
  7. HARNAL [Concomitant]
     Indication: NEUROGENIC BLADDER
     Route: 048
  8. SENNOSIDE [Concomitant]
     Indication: CONSTIPATION
     Route: 048
     Dates: start: 20040526
  9. MAGNESIUM OXIDE [Concomitant]
     Indication: CONSTIPATION
     Route: 048
     Dates: start: 20040526, end: 20050720
  10. FP [Concomitant]
     Indication: PARKINSON'S DISEASE
     Route: 048
     Dates: start: 20040923
  11. GLYCERIN [Concomitant]
     Indication: CONSTIPATION
     Dates: start: 20041020, end: 20051103
  12. MAGLAX [Concomitant]
     Indication: CONSTIPATION
     Route: 048
     Dates: start: 20050721

REACTIONS (2)
  - CARDIAC VALVE DISEASE [None]
  - SLEEP DISORDER [None]
